FAERS Safety Report 22029662 (Version 1)
Quarter: 2023Q1

REPORT INFORMATION
  Report Type: Spontaneous
  Country: CN (occurrence: CN)
  Receive Date: 20230223
  Receipt Date: 20230223
  Transmission Date: 20230418
  Serious: Yes (Hospitalization)
  Sender: FDA-Public Use
  Company Number: CN-BAYER-2023A017616

PATIENT
  Age: 56 Year
  Sex: Male

DRUGS (2)
  1. NEXAVAR [Interacting]
     Active Substance: SORAFENIB
     Indication: Hepatocellular carcinoma
     Dosage: UNK
     Dates: start: 202006, end: 202102
  2. CAMRELIZUMAB [Interacting]
     Active Substance: CAMRELIZUMAB
     Indication: Hepatocellular carcinoma
     Dosage: 200 MG, EVERY 21 DAYS AS A CYCLE
     Dates: start: 20201229, end: 202102

REACTIONS (4)
  - Immune-mediated myocarditis [Recovered/Resolved]
  - Immune-mediated myositis [Recovered/Resolved]
  - Transaminases increased [None]
  - Drug interaction [None]

NARRATIVE: CASE EVENT DATE: 20210201
